FAERS Safety Report 13874174 (Version 2)
Quarter: 2017Q3

REPORT INFORMATION
  Report Type: Spontaneous
  Country: CN (occurrence: CN)
  Receive Date: 20170816
  Receipt Date: 20170823
  Transmission Date: 20171127
  Serious: No
  Sender: FDA-Public Use
  Company Number: CN-009507513-1708CHN006312

PATIENT
  Age: 52 Year
  Sex: Female

DRUGS (1)
  1. MARVELON [Suspect]
     Active Substance: DESOGESTREL\ETHINYL ESTRADIOL
     Dosage: UNKNOWN
     Route: 048

REACTIONS (6)
  - Withdrawal bleed [Unknown]
  - Menstrual disorder [Unknown]
  - Hypomenorrhoea [Unknown]
  - Dizziness [Unknown]
  - Headache [Unknown]
  - Therapeutic response unexpected [Unknown]
